FAERS Safety Report 9098066 (Version 2)
Quarter: 2013Q1

REPORT INFORMATION
  Report Type: Spontaneous
  Country: US (occurrence: US)
  Receive Date: 20130213
  Receipt Date: 20130311
  Transmission Date: 20140127
  Serious: Yes (Other)
  Sender: FDA-Public Use
  Company Number: US-NAPPMUNDI-USA-2013-0098661

PATIENT
  Age: 54 Year
  Sex: Male
  Weight: 72.56 kg

DRUGS (5)
  1. BUTRANS [Suspect]
     Indication: BACK PAIN
     Dosage: 5 MCG, WEEKLY
     Route: 062
     Dates: start: 20130202, end: 20130211
  2. BUTRANS [Suspect]
     Indication: INTERVERTEBRAL DISC PROTRUSION
  3. BUTRANS [Suspect]
     Indication: SPINAL OSTEOARTHRITIS
  4. BUTRANS [Suspect]
     Indication: NEUROPATHY PERIPHERAL
  5. OXYCODONE / ACETAMINOPHEN [Concomitant]
     Indication: BREAKTHROUGH PAIN
     Dosage: 1 TABLET, TID
     Route: 048
     Dates: start: 201204

REACTIONS (4)
  - Hypopnoea [Recovered/Resolved]
  - Dyspnoea [Recovered/Resolved]
  - Chest discomfort [Recovered/Resolved]
  - Drug effect decreased [Unknown]
